FAERS Safety Report 8620889-X (Version None)
Quarter: 2012Q3

REPORT INFORMATION
  Report Type: 
  Country: None (occurrence: None)
  Receive Date: 20120824
  Receipt Date: 20120814
  Transmission Date: 20120928
  Serious: Yes (Hospitalization, Other)
  Sender: FDA-Public Use
  Company Number: CHPA2012US018150

PATIENT
  Age: 80 Year
  Sex: Female

DRUGS (3)
  1. GAS-X [Suspect]
     Dosage: UNK, UNK
  2. EXCEDRIN (MIGRAINE) [Suspect]
     Dosage: UNK, UNK
     Route: 048
  3. ALLERGY MEDICATION [Concomitant]
     Dosage: UNK, EVERY 3 WEEKS

REACTIONS (9)
  - CATARACT [None]
  - ABDOMINAL PAIN UPPER [None]
  - EYE DISORDER [None]
  - VISION BLURRED [None]
  - FATIGUE [None]
  - MALAISE [None]
  - GASTRIC ULCER [None]
  - ABNORMAL LOSS OF WEIGHT [None]
  - ERYTHEMA [None]
